FAERS Safety Report 10010557 (Version 1)
Quarter: 2014Q1

REPORT INFORMATION
  Report Type: Spontaneous
  Country: CA (occurrence: CA)
  Receive Date: 20140314
  Receipt Date: 20140314
  Transmission Date: 20141002
  Serious: Yes (Other)
  Sender: FDA-Public Use
  Company Number: CA-PFIZER INC-2014071844

PATIENT
  Age: 53 Year
  Sex: Female

DRUGS (2)
  1. GABAPENTIN [Suspect]
     Indication: DISCOMFORT
     Dosage: 2400 MG, DAILY
     Dates: start: 2011
  2. GABAPENTIN [Suspect]
     Dosage: 1200 MG, DAILY
     Dates: start: 2012

REACTIONS (1)
  - Foot fracture [Unknown]
